FAERS Safety Report 4688213-5 (Version None)
Quarter: 2005Q2

REPORT INFORMATION
  Report Type: 
  Country: None (occurrence: None)
  Receive Date: 20050609
  Receipt Date: 20050524
  Transmission Date: 20051028
  Serious: Yes (Death, Hospitalization)
  Sender: FDA-Public Use
  Company Number: A-US2005-09623

PATIENT
  Age: 55 Year
  Sex: Female

DRUGS (12)
  1. TRACLEER [Suspect]
     Indication: PULMONARY HYPERTENSION
     Dosage: 62.5 MG, BID, ORAL
     Route: 048
     Dates: start: 20050418, end: 20050428
  2. DIOVAN [Concomitant]
  3. SPIRONOLACTONE [Concomitant]
  4. FUROSEMIDE [Concomitant]
  5. LIPITOR [Concomitant]
  6. PREMARIN [Concomitant]
  7. SINGULAIR [Concomitant]
  8. ASPIRIN [Concomitant]
  9. FLOVENT [Concomitant]
  10. COMBIVENT (SALBUTAMOL SULFATE, IPRATROPIUM BROMIDE) [Concomitant]
  11. NOVOLOG [Concomitant]
  12. LANTUS [Concomitant]

REACTIONS (10)
  - CARDIAC FAILURE [None]
  - HEPATIC FAILURE [None]
  - HEPATOTOXICITY [None]
  - HYPOTENSION [None]
  - INTESTINAL ISCHAEMIA [None]
  - LOW CARDIAC OUTPUT SYNDROME [None]
  - REFUSAL OF TREATMENT BY PATIENT [None]
  - RENAL FAILURE [None]
  - RIGHT VENTRICULAR FAILURE [None]
  - WHITE BLOOD CELL COUNT INCREASED [None]
